FAERS Safety Report 7571157-9 (Version None)
Quarter: 2011Q2

REPORT INFORMATION
  Report Type: 
  Country: None (occurrence: None)
  Receive Date: 20110624
  Receipt Date: 20110620
  Transmission Date: 20111010
  Serious: Yes (Other)
  Sender: FDA-Public Use
  Company Number: US-PFIZER INC-2011136384

PATIENT
  Sex: Female
  Weight: 66.7 kg

DRUGS (3)
  1. ACIPHEX [Concomitant]
     Indication: COLITIS ULCERATIVE
     Dosage: 20 MG, DAILY
  2. PROTONIX [Concomitant]
     Indication: COLITIS ULCERATIVE
     Dosage: 40 MG, DAILY
  3. PREMARIN [Suspect]
     Dosage: 3X/WEEK
     Route: 067
     Dates: start: 20110601

REACTIONS (6)
  - ABDOMINAL PAIN LOWER [None]
  - VULVOVAGINAL BURNING SENSATION [None]
  - HAEMORRHAGE [None]
  - VULVOVAGINAL PRURITUS [None]
  - BACK PAIN [None]
  - DIARRHOEA [None]
